FAERS Safety Report 9144697 (Version 1)
Quarter: 2013Q1

REPORT INFORMATION
  Report Type: Spontaneous
  Country: US (occurrence: US)
  Receive Date: 20130306
  Receipt Date: 20130306
  Transmission Date: 20140127
  Serious: Yes (Hospitalization)
  Sender: FDA-Public Use
  Company Number: US-GILEAD-2013-0070336

PATIENT
  Age: 18 Year
  Sex: Female

DRUGS (4)
  1. LETAIRIS [Suspect]
     Indication: PULMONARY ARTERIAL HYPERTENSION
     Dosage: 10 MG, QD
     Route: 048
     Dates: start: 20120820
  2. ASPIRIN [Concomitant]
     Indication: PULMONARY HYPERTENSION
     Route: 048
  3. FUROSEMIDE [Concomitant]
     Indication: PULMONARY HYPERTENSION
     Route: 048
  4. TADALAFIL [Concomitant]
     Indication: PULMONARY HYPERTENSION

REACTIONS (3)
  - Influenza [Recovered/Resolved]
  - Blood potassium decreased [Unknown]
  - Vomiting [Unknown]
